FAERS Safety Report 9917545 (Version 1)
Quarter: 2014Q1

REPORT INFORMATION
  Report Type: Spontaneous
  Country: ES (occurrence: ES)
  Receive Date: 20140221
  Receipt Date: 20140221
  Transmission Date: 20141002
  Serious: Yes (Hospitalization, Other)
  Sender: FDA-Public Use
  Company Number: ES-JNJFOC-20140211262

PATIENT
  Sex: Male

DRUGS (5)
  1. DOXORUBICIN HYDROCHLORIDE [Suspect]
     Indication: CASTLEMAN^S DISEASE
     Route: 042
  2. RITUXIMAB [Suspect]
     Indication: CASTLEMAN^S DISEASE
     Route: 065
  3. CYCLOPHOSPHAMIDE [Suspect]
     Indication: CASTLEMAN^S DISEASE
     Route: 065
  4. VINCRISTINE [Suspect]
     Indication: CASTLEMAN^S DISEASE
     Route: 065
  5. PREDNISONE [Suspect]
     Indication: CASTLEMAN^S DISEASE
     Route: 065

REACTIONS (4)
  - Castleman^s disease [Unknown]
  - Adverse drug reaction [Unknown]
  - Off label use [Unknown]
  - Pyrexia [Recovered/Resolved]
